FAERS Safety Report 17196482 (Version 1)
Quarter: 2019Q4

REPORT INFORMATION
  Report Type: Spontaneous
  Country: SE (occurrence: SE)
  Receive Date: 20191224
  Receipt Date: 20191224
  Transmission Date: 20200122
  Serious: Yes (Hospitalization, Other)
  Sender: FDA-Public Use
  Company Number: SE-PFIZER INC-2019547179

PATIENT
  Sex: Female

DRUGS (3)
  1. SERTRALINE HCL [Suspect]
     Active Substance: SERTRALINE HYDROCHLORIDE
     Dosage: UNK
     Dates: start: 20180107, end: 20180107
  2. PROPAVAN [Suspect]
     Active Substance: PROPIOMAZINE
     Dosage: 500 MG, UNK
     Route: 048
     Dates: start: 20180107, end: 20180107
  3. ATARAX [Suspect]
     Active Substance: HYDROXYZINE HYDROCHLORIDE
     Dosage: 250 MG, UNK
     Dates: start: 20180107, end: 20180107

REACTIONS (4)
  - Fatigue [Unknown]
  - Intentional overdose [Unknown]
  - Intentional self-injury [Unknown]
  - Formication [Unknown]

NARRATIVE: CASE EVENT DATE: 20180107
